FAERS Safety Report 15517759 (Version 1)
Quarter: 2018Q4

REPORT INFORMATION
  Report Type: Spontaneous
  Country: US (occurrence: US)
  Receive Date: 20181018
  Receipt Date: 20181018
  Transmission Date: 20190205
  Serious: No
  Sender: FDA-Public Use
  Company Number: None

PATIENT
  Age: 23 Year
  Sex: Female
  Weight: 67.5 kg

DRUGS (1)
  1. MAKENA [Suspect]
     Active Substance: HYDROXYPROGESTERONE CAPROATE
     Indication: PREMATURE LABOUR
     Dosage: ?          OTHER FREQUENCY:ONCE A MONTH;OTHER ROUTE:INJECTED INTO MY BUTT?
     Dates: start: 20161013, end: 20170407

REACTIONS (4)
  - Mass [None]
  - Pruritus [None]
  - Contusion [None]
  - Dyspnoea [None]

NARRATIVE: CASE EVENT DATE: 20161202
